FAERS Safety Report 25388293 (Version 2)
Quarter: 2025Q3

REPORT INFORMATION
  Report Type: Spontaneous
  Country: JP (occurrence: JP)
  Receive Date: 20250603
  Receipt Date: 20250702
  Transmission Date: 20251020
  Serious: No
  Sender: AMGEN
  Company Number: JP-KYOWAKIRIN-2025KK009797

PATIENT
  Age: 8 Decade
  Sex: Female

DRUGS (4)
  1. DARBEPOETIN ALFA [Suspect]
     Active Substance: DARBEPOETIN ALFA
     Indication: Nephrogenic anaemia
     Route: 065
  2. DAPRODUSTAT [Suspect]
     Active Substance: DAPRODUSTAT
     Indication: Nephrogenic anaemia
     Route: 048
     Dates: start: 20240605
  3. DAPRODUSTAT [Suspect]
     Active Substance: DAPRODUSTAT
     Route: 048
  4. DAPRODUSTAT [Suspect]
     Active Substance: DAPRODUSTAT
     Route: 048
     Dates: start: 20241106

REACTIONS (1)
  - No adverse event [Unknown]
